FAERS Safety Report 20138361 (Version 1)
Quarter: 2021Q4

REPORT INFORMATION
  Report Type: Spontaneous
  Country: HR (occurrence: HR)
  Receive Date: 20211202
  Receipt Date: 20211202
  Transmission Date: 20220304
  Serious: Yes (Other)
  Sender: FDA-Public Use
  Company Number: None

PATIENT
  Sex: Female

DRUGS (2)
  1. LISINOPRIL [Suspect]
     Active Substance: LISINOPRIL
     Dosage: 75 MG, ADR IS ADEQUATELY LABELLED: NO, ADR IS ADEQUATELY LABELLED: HYPOTENSION, ADR IS NOT ADEQUATEL
     Route: 048
     Dates: start: 20210612, end: 20210612
  2. ZOLPIDEM TARTRATE [Suspect]
     Active Substance: ZOLPIDEM TARTRATE
     Dosage: 150 MG, ADR IS ADEQUATELY LABELLED: NO, ADR IS ADEQUATELY LABELLED: SOMNOLENCE, ADR IS NOT ADEQUATEL
     Route: 048
     Dates: start: 20210612, end: 20210612

REACTIONS (4)
  - Suicide attempt [Unknown]
  - Hypotension [Unknown]
  - Somnolence [Unknown]
  - Intentional overdose [Unknown]

NARRATIVE: CASE EVENT DATE: 20210612
